FAERS Safety Report 5895372-5 (Version None)
Quarter: 2008Q3

REPORT INFORMATION
  Report Type: 
  Country: None (occurrence: None)
  Receive Date: 20080923
  Receipt Date: 20080923
  Transmission Date: 20090109
  Serious: Yes (Life-Threatening, Hospitalization, Disabling, Other)
  Sender: FDA-Public Use
  Company Number: None

PATIENT
  Age: 37 Year
  Sex: Female
  Weight: 90.7194 kg

DRUGS (1)
  1. ZOLOFT [Suspect]
     Indication: DEPRESSION
     Dosage: 2 BY MOUTH EVERY MORNING
     Route: 048
     Dates: start: 20080811, end: 20080911

REACTIONS (4)
  - CARDIAC ARREST [None]
  - CRYING [None]
  - DRUG INEFFECTIVE [None]
  - PAIN [None]
